FAERS Safety Report 9667724 (Version 2)
Quarter: 2013Q4

REPORT INFORMATION
  Report Type: Spontaneous
  Country: US (occurrence: US)
  Receive Date: 20131104
  Receipt Date: 20131104
  Transmission Date: 20140711
  Serious: No
  Sender: FDA-Public Use
  Company Number: US-TEVA-435622USA

PATIENT
  Sex: Female

DRUGS (7)
  1. PROAIR HFA [Suspect]
     Dosage: 2P Q6H
     Dates: start: 20130204
  2. ADVAIR [Concomitant]
     Dates: start: 20130502, end: 20130905
  3. CLARINEX [Concomitant]
     Dates: start: 20130204, end: 20130905
  4. PROMETHAZINE DM [Concomitant]
     Dates: start: 20130710, end: 20130905
  5. SINGULAIR [Concomitant]
     Dates: start: 20130502, end: 20130905
  6. TRIAMCINOLONE ACETONIDE [Concomitant]
     Dates: start: 20130710, end: 20130905
  7. ZITHROMAX Z-PACK [Concomitant]
     Dates: start: 20130905, end: 20130909

REACTIONS (4)
  - Pregnancy [Unknown]
  - Acute sinusitis [Recovered/Resolved]
  - Furuncle [Recovered/Resolved]
  - Rash [Recovered/Resolved]
